FAERS Safety Report 11736153 (Version 1)
Quarter: 2015Q4

REPORT INFORMATION
  Report Type: Spontaneous
  Country: US (occurrence: US)
  Receive Date: 20151113
  Receipt Date: 20151113
  Transmission Date: 20160304
  Serious: Yes (Other)
  Sender: FDA-Public Use
  Company Number: US-JNJFOC-20151010855

PATIENT
  Age: 66 Year
  Sex: Male

DRUGS (2)
  1. DOXORUBICIN [Suspect]
     Active Substance: DOXORUBICIN
     Indication: BLADDER CANCER
     Dosage: DAY 8
     Route: 042
  2. MOTEXAFIN GADOLINIUM [Suspect]
     Active Substance: MOTEXAFIN GADOLINIUM
     Indication: BLADDER CANCER
     Dosage: 3.3 MG/KG PER DAY ON DAY 1 AND 8.
     Route: 042

REACTIONS (3)
  - Product use issue [Unknown]
  - Off label use [Unknown]
  - Anaemia [Unknown]
